FAERS Safety Report 6649998-1 (Version None)
Quarter: 2010Q1

REPORT INFORMATION
  Report Type: 
  Country: None (occurrence: None)
  Receive Date: 20100324
  Receipt Date: 20100324
  Transmission Date: 20100710
  Serious: Yes (Hospitalization)
  Sender: FDA-Public Use
  Company Number: None

PATIENT
  Sex: Female
  Weight: 75.2971 kg

DRUGS (1)
  1. RECLAST [Suspect]
     Indication: OSTEOPOROSIS
     Dosage: 1X IV
     Route: 042
     Dates: start: 20100127

REACTIONS (12)
  - BLOOD URINE PRESENT [None]
  - CHEST DISCOMFORT [None]
  - CHILLS [None]
  - DIZZINESS [None]
  - INFLUENZA LIKE ILLNESS [None]
  - MUSCULAR WEAKNESS [None]
  - PARAESTHESIA [None]
  - PARAESTHESIA ORAL [None]
  - POLLAKIURIA [None]
  - SLUGGISHNESS [None]
  - SYNCOPE [None]
  - THROAT TIGHTNESS [None]
